FAERS Safety Report 6923522-8 (Version None)
Quarter: 2010Q3

REPORT INFORMATION
  Report Type: 
  Country: None (occurrence: None)
  Receive Date: 20100813
  Receipt Date: 20100805
  Transmission Date: 20110219
  Serious: Yes (Hospitalization)
  Sender: FDA-Public Use
  Company Number: A0833412A

PATIENT
  Sex: Female
  Weight: 104.5 kg

DRUGS (2)
  1. AVANDIA [Suspect]
     Indication: DIABETES MELLITUS
     Dosage: 4MG TWICE PER DAY
     Route: 048
     Dates: start: 20020101, end: 20070101
  2. AVANDAMET [Suspect]
     Route: 048

REACTIONS (4)
  - ACUTE MYOCARDIAL INFARCTION [None]
  - CARDIAC FAILURE CONGESTIVE [None]
  - CAROTID ARTERY STENOSIS [None]
  - CORONARY ARTERY DISEASE [None]
